FAERS Safety Report 8967746 (Version 1)
Quarter: 2012Q4

REPORT INFORMATION
  Report Type: 
  Country: US (occurrence: None)
  Receive Date: 20121213
  Receipt Date: 20121213
  Transmission Date: 20130627
  Serious: No
  Sender: FDA-Public Use
  Company Number: None

PATIENT
  Sex: Male
  Weight: 103.9 kg

DRUGS (1)
  1. PACLITAXEL (TAXOL) [Suspect]
     Dates: end: 20121205

REACTIONS (1)
  - Lymphocyte count decreased [None]
